FAERS Safety Report 23287640 (Version 1)
Quarter: 2023Q4

REPORT INFORMATION
  Report Type: Spontaneous
  Country: MX (occurrence: MX)
  Receive Date: 20231212
  Receipt Date: 20231212
  Transmission Date: 20240109
  Serious: Yes (Other)
  Sender: FDA-Public Use
  Company Number: MX-SANDOZ-SDZ2023MX066235

PATIENT
  Sex: Female
  Weight: 63 kg

DRUGS (4)
  1. ENTRESTO [Suspect]
     Active Substance: SACUBITRIL\VALSARTAN
     Indication: Hypertension
     Dosage: 1 DF, BID
     Route: 048
     Dates: start: 202308
  2. ENTRESTO [Suspect]
     Active Substance: SACUBITRIL\VALSARTAN
     Indication: Cardiac disorder
  3. HYDROCHLOROTHIAZIDE [Suspect]
     Active Substance: HYDROCHLOROTHIAZIDE
     Indication: Blood pressure measurement
     Dosage: 1 DF, QD
     Route: 048
     Dates: start: 2022
  4. TELMISARTAN [Suspect]
     Active Substance: TELMISARTAN
     Indication: Blood pressure measurement
     Dosage: 1 DF, QD
     Route: 048
     Dates: start: 2019

REACTIONS (2)
  - Respiratory failure [Not Recovered/Not Resolved]
  - Angina pectoris [Not Recovered/Not Resolved]
